FAERS Safety Report 9530419 (Version 1)
Quarter: 2013Q3

REPORT INFORMATION
  Report Type: Spontaneous
  Country: CN (occurrence: CN)
  Receive Date: 20130918
  Receipt Date: 20130918
  Transmission Date: 20140515
  Serious: Yes (Other)
  Sender: FDA-Public Use
  Company Number: CN-ROCHE-1272829

PATIENT
  Sex: Male
  Weight: 68 kg

DRUGS (4)
  1. RITUXIMAB [Suspect]
     Indication: B-CELL LYMPHOMA
     Dosage: ROUTE: IVGTT
     Route: 065
     Dates: start: 20120328, end: 20120328
  2. ETOPOSIDE [Suspect]
     Indication: B-CELL LYMPHOMA
     Dosage: ROUTE: IVGTT
     Route: 065
     Dates: start: 20120329, end: 20120401
  3. CISPLATIN [Suspect]
     Indication: B-CELL LYMPHOMA
     Dosage: ROUTE: IVGTT
     Route: 065
     Dates: start: 20120329, end: 20120331
  4. METHYLPREDNISOLONE [Suspect]
     Indication: B-CELL LYMPHOMA
     Route: 065
     Dates: start: 20120328

REACTIONS (1)
  - Bone marrow failure [Recovering/Resolving]
